FAERS Safety Report 6828233-5 (Version None)
Quarter: 2010Q3

REPORT INFORMATION
  Report Type: 
  Country: None (occurrence: None)
  Receive Date: 20100709
  Receipt Date: 20070201
  Transmission Date: 20110219
  Serious: No
  Sender: FDA-Public Use
  Company Number: US-PFIZER INC-2007009423

PATIENT
  Sex: Male
  Weight: 65.77 kg

DRUGS (2)
  1. CHANTIX [Suspect]
     Indication: SMOKING CESSATION THERAPY
     Dates: start: 20070112, end: 20070116
  2. ANALGESICS [Concomitant]
     Indication: BACK INJURY

REACTIONS (2)
  - NAUSEA [None]
  - OVERDOSE [None]
